FAERS Safety Report 5049275-9 (Version None)
Quarter: 2006Q3

REPORT INFORMATION
  Report Type: 
  Country: None (occurrence: None)
  Receive Date: 20060706
  Receipt Date: 20060622
  Transmission Date: 20061208
  Serious: Yes (Other)
  Sender: FDA-Public Use
  Company Number: A-CH2006-12279

PATIENT
  Age: 68 Year
  Sex: Female
  Weight: 99 kg

DRUGS (6)
  1. TRACLEER [Suspect]
     Indication: PULMONARY HYPERTENSION
     Dosage: SEE IMAGE
     Route: 048
     Dates: start: 20060119, end: 20060215
  2. TRACLEER [Suspect]
     Indication: PULMONARY HYPERTENSION
     Dosage: SEE IMAGE
     Route: 048
     Dates: start: 20060216, end: 20060420
  3. FUROSEMIDE [Concomitant]
  4. LIPITOR [Concomitant]
  5. CARBASALATE CALCIUM (CARBASALATE CALCIUM) [Concomitant]
  6. GLUMETERIDE [Concomitant]

REACTIONS (2)
  - ALANINE AMINOTRANSFERASE INCREASED [None]
  - ASPARTATE AMINOTRANSFERASE INCREASED [None]
